FAERS Safety Report 6331655-2 (Version None)
Quarter: 2009Q3

REPORT INFORMATION
  Report Type: 
  Country: None (occurrence: None)
  Receive Date: 20090827
  Receipt Date: 20090817
  Transmission Date: 20100115
  Serious: Yes (Hospitalization)
  Sender: FDA-Public Use
  Company Number: NL-ABBOTT-09P-114-0593477-00

PATIENT
  Sex: Female
  Weight: 70 kg

DRUGS (5)
  1. HUMIRA [Suspect]
     Indication: SPONDYLOARTHROPATHY
     Route: 058
     Dates: start: 20090420, end: 20090815
  2. HUMIRA [Suspect]
     Indication: RHEUMATOID ARTHRITIS
  3. SULFASALAZINE [Concomitant]
     Indication: SPONDYLOARTHROPATHY
     Route: 048
  4. IBUPROFEN [Concomitant]
     Indication: SPONDYLOARTHROPATHY
     Route: 048
     Dates: start: 20090310
  5. PARACETAMOL [Concomitant]
     Indication: SPONDYLOARTHROPATHY
     Route: 048
     Dates: start: 20090310

REACTIONS (1)
  - MANIA [None]
